FAERS Safety Report 7230513-9 (Version None)
Quarter: 2011Q1

REPORT INFORMATION
  Report Type: 
  Country: None (occurrence: None)
  Receive Date: 20110118
  Receipt Date: 20110105
  Transmission Date: 20110831
  Serious: Yes (Hospitalization, Other)
  Sender: FDA-Public Use
  Company Number: PHHY2010CA74122

PATIENT
  Sex: Male

DRUGS (8)
  1. NORVASC [Concomitant]
     Dosage: 5 MG, UNK
  2. CLOZARIL [Suspect]
     Dosage: 75 MG DAILY PER OS
     Route: 048
     Dates: start: 20101022
  3. CLOZARIL [Suspect]
     Dosage: 300 MG, QHS
     Dates: start: 20101129
  4. EPIVAL [Concomitant]
  5. ZYPREXA [Concomitant]
     Dosage: 5 MG, QID
  6. CLOPIXOL [Concomitant]
     Route: 030
  7. PROCYCLIDINE [Concomitant]
     Dosage: 5 MG, 1 TABLET
  8. LIPIDIL [Concomitant]

REACTIONS (9)
  - SPEECH DISORDER [None]
  - SLEEP APNOEA SYNDROME [None]
  - BLOOD PRESSURE INCREASED [None]
  - HEAD TITUBATION [None]
  - PETIT MAL EPILEPSY [None]
  - UNRESPONSIVE TO STIMULI [None]
  - MOVEMENT DISORDER [None]
  - CARDIAC MURMUR [None]
  - HEART RATE INCREASED [None]
